FAERS Safety Report 16533554 (Version 10)
Quarter: 2020Q4

REPORT INFORMATION
  Report Type: Report from Study
  Country: US (occurrence: US)
  Receive Date: 20190705
  Receipt Date: 20201101
  Transmission Date: 20210113
  Serious: Yes (Death, Life-Threatening, Other)
  Sender: FDA-Public Use
  Company Number: PHHY2019US152617

PATIENT
  Sex: Female

DRUGS (3)
  1. KYMRIAH [Suspect]
     Active Substance: TISAGENLECLEUCEL
     Indication: B-CELL TYPE ACUTE LEUKAEMIA
     Dosage: 1X108 CAR POSITIVE VIABLE T-CELLS (ONCE/SINGLE)
     Route: 041
     Dates: start: 20180828
  2. FLUDARABINE [Concomitant]
     Active Substance: FLUDARABINE PHOSPHATE
     Indication: CHEMOTHERAPY
     Dosage: UNK
     Route: 065
  3. CYCLOPHOSPHAMIDE. [Concomitant]
     Active Substance: CYCLOPHOSPHAMIDE
     Indication: CHEMOTHERAPY
     Dosage: UNK
     Route: 065

REACTIONS (23)
  - Pyrexia [Unknown]
  - B-cell type acute leukaemia [Fatal]
  - Malignant neoplasm progression [Fatal]
  - Hypotension [Unknown]
  - Hallucination [Unknown]
  - White blood cell count decreased [Unknown]
  - Treatment failure [Unknown]
  - Mycobacterium avium complex infection [Unknown]
  - White blood cell count increased [Unknown]
  - Cytokine release syndrome [Recovered/Resolved]
  - Platelet count decreased [Recovered/Resolved]
  - Respirovirus test positive [Unknown]
  - Neutrophil count decreased [Recovered/Resolved]
  - Out of specification test results [Unknown]
  - Aspergillus infection [Unknown]
  - Hypoxia [Unknown]
  - Neurotoxicity [Recovered/Resolved]
  - Haemoglobin decreased [Recovering/Resolving]
  - Lymphocyte count decreased [Unknown]
  - Depressed level of consciousness [Unknown]
  - Hypogammaglobulinaemia [Unknown]
  - Rubulavirus test positive [Unknown]
  - Haematocrit decreased [Not Recovered/Not Resolved]
